FAERS Safety Report 8017584-7 (Version None)
Quarter: 2011Q4

REPORT INFORMATION
  Report Type: 
  Country: None (occurrence: None)
  Receive Date: 20111229
  Receipt Date: 20111229
  Transmission Date: 20120403
  Serious: Yes (Other)
  Sender: FDA-Public Use
  Company Number: None

PATIENT
  Age: 82 Year
  Sex: Male

DRUGS (1)
  1. VICTRELIS 200MG MERCK SCHERING [Suspect]
     Dosage: 800MG TID PO
     Route: 048
     Dates: start: 20111116, end: 20111227

REACTIONS (5)
  - ANAEMIA [None]
  - MEMORY IMPAIRMENT [None]
  - BLOOD GLUCOSE INCREASED [None]
  - STOMATITIS [None]
  - BLOOD GLUCOSE DECREASED [None]
